FAERS Safety Report 10585106 (Version 6)
Quarter: 2015Q1

REPORT INFORMATION
  Report Type: Spontaneous
  Country: US (occurrence: US)
  Receive Date: 20141114
  Receipt Date: 20150306
  Transmission Date: 20150720
  Serious: Yes (Other)
  Sender: FDA-Public Use
  Company Number: US-UNITED THERAPEUTICS-UNT-2014-007981

PATIENT
  Age: 70 Year
  Sex: Female
  Weight: 93.88 kg

DRUGS (5)
  1. TRACLEER [Concomitant]
     Active Substance: BOSENTAN\BOSENTAN MONOHYDRATE
     Indication: PRODUCT USED FOR UNKNOWN INDICATION
  2. TYVASO [Suspect]
     Active Substance: TREPROSTINIL
     Dosage: 18-54 MICROGRAMS, QID
  3. TYVASO [Suspect]
     Active Substance: TREPROSTINIL
     Dosage: 18-54 MICROGRAMS, QID
     Dates: start: 20140725
  4. TYVASO [Suspect]
     Active Substance: TREPROSTINIL
     Dosage: 18-54 MICROGRAMS, QID
  5. TYVASO [Suspect]
     Active Substance: TREPROSTINIL
     Indication: PULMONARY ARTERIAL HYPERTENSION
     Dosage: 18-54 MICROGRAMS, QID
     Dates: start: 20130725

REACTIONS (14)
  - Pancreatic disorder [Unknown]
  - Pain [Unknown]
  - Pruritus [Unknown]
  - Dizziness [Unknown]
  - Tooth infection [Unknown]
  - Pyrexia [Unknown]
  - Kidney infection [Unknown]
  - Headache [Unknown]
  - Oropharyngeal pain [Unknown]
  - Sinusitis [Unknown]
  - Tooth extraction [Unknown]
  - Influenza [Unknown]
  - Malaise [Unknown]
  - Syncope [Unknown]

NARRATIVE: CASE EVENT DATE: 2014
